FAERS Safety Report 10304729 (Version 1)
Quarter: 2014Q3

REPORT INFORMATION
  Report Type: Spontaneous
  Country: US (occurrence: None)
  Receive Date: 20140709
  Receipt Date: 20140709
  Transmission Date: 20150326
  Serious: Yes (Congenital Anomaly)
  Sender: FDA-Public Use
  Company Number: 2012HINSPO0113

PATIENT
  Age: 28 Year
  Sex: Female

DRUGS (5)
  1. LAMIVUDINE + ZIDOVUDINE (LAMIVUDINE, ZIDOVUDINE) [Suspect]
     Active Substance: LAMIVUDINE\ZIDOVUDINE
     Indication: ACQUIRED IMMUNODEFICIENCY SYNDROME
     Dosage: 2 TAB/CAPS, ORAL
     Route: 048
     Dates: start: 20120810
  2. ZIDOVUDINE (ZIDOVUDINE) UNKNOWN) [Concomitant]
     Active Substance: ZIDOVUDINE
     Dosage: 600 MG/KG/HR, ORAL
     Route: 048
     Dates: start: 20130621, end: 20130624
  3. LAMIVUDINE (LAMIVUDINE) UNKNOWN [Suspect]
     Active Substance: LAMIVUDINE
     Indication: ANTIRETROVIRAL THERAPY
     Route: 048
     Dates: start: 20130621, end: 20130624
  4. KALETRA (LOPINAVIR, RITONAVIR) [Concomitant]
  5. ALUVIA (LOPINAVIR, RITONAVIR) [Concomitant]

REACTIONS (4)
  - Abortion induced [None]
  - Arnold-Chiari malformation [None]
  - Neural tube defect [None]
  - Exposure during pregnancy [None]

NARRATIVE: CASE EVENT DATE: 20120905
